FAERS Safety Report 23785732 (Version 1)
Quarter: 2024Q2

REPORT INFORMATION
  Report Type: Report from Study
  Country: US (occurrence: US)
  Receive Date: 20240425
  Receipt Date: 20240425
  Transmission Date: 20240716
  Serious: Yes (Other)
  Sender: FDA-Public Use
  Company Number: US-ABBVIE-5725238

PATIENT
  Sex: Female
  Weight: 68.038 kg

DRUGS (7)
  1. HUMIRA [Suspect]
     Active Substance: ADALIMUMAB
     Indication: Hidradenitis
     Dosage: LAST ADMIN DATE SECOND WEEK OF  APR 2024
     Route: 058
     Dates: start: 20180418
  2. HUMIRA [Suspect]
     Active Substance: ADALIMUMAB
     Route: 058
     Dates: start: 20240418
  3. IRON [Concomitant]
     Active Substance: IRON
     Indication: Anaemia
     Dosage: SUPPLEMENTS
  4. LEVOTHYROXINE [Concomitant]
     Active Substance: LEVOTHYROXINE\LEVOTHYROXINE SODIUM
     Indication: Graves^ disease
  5. PROTONIX [Concomitant]
     Active Substance: PANTOPRAZOLE SODIUM
     Indication: Gastrointestinal disorder
  6. ZOLOFT [Concomitant]
     Active Substance: SERTRALINE HYDROCHLORIDE
     Indication: Obsessive-compulsive disorder
  7. XANAX [Concomitant]
     Active Substance: ALPRAZOLAM
     Indication: Anxiety
     Dosage: AS NEEDED

REACTIONS (1)
  - Meniscus injury [Recovering/Resolving]

NARRATIVE: CASE EVENT DATE: 20230101
